FAERS Safety Report 7492544-3 (Version None)
Quarter: 2011Q2

REPORT INFORMATION
  Report Type: 
  Country: None (occurrence: None)
  Receive Date: 20110519
  Receipt Date: 20110513
  Transmission Date: 20111010
  Serious: Yes (Death, Other)
  Sender: FDA-Public Use
  Company Number: GB-PFIZER INC-2011078927

PATIENT
  Age: 54 Year
  Sex: Male

DRUGS (2)
  1. TIGECYCLINE [Suspect]
     Indication: CELLULITIS
  2. TIGECYCLINE [Suspect]
     Indication: SKIN INFECTION
     Dosage: UNK
     Route: 042
     Dates: start: 20110113

REACTIONS (4)
  - SEPSIS [None]
  - SEPTIC SHOCK [None]
  - DRUG INEFFECTIVE [None]
  - STREPTOCOCCAL INFECTION [None]
